FAERS Safety Report 7417985-1 (Version None)
Quarter: 2011Q2

REPORT INFORMATION
  Report Type: 
  Country: None (occurrence: None)
  Receive Date: 20110415
  Receipt Date: 20110408
  Transmission Date: 20111010
  Serious: Yes (Life-Threatening)
  Sender: FDA-Public Use
  Company Number: JP-JNJFOC-20110205814

PATIENT
  Sex: Female
  Weight: 53 kg

DRUGS (23)
  1. DOXORUBICIN HCL [Suspect]
     Dosage: CYCLE 4
     Route: 042
  2. DOXORUBICIN HCL [Suspect]
     Dosage: CYCLE 8
     Route: 042
  3. CATLEP [Concomitant]
     Indication: BACK PAIN
     Route: 061
  4. PRIMPERAN TAB [Concomitant]
     Indication: NAUSEA
     Route: 048
  5. DOXORUBICIN HCL [Suspect]
     Indication: OVARIAN CANCER RECURRENT
     Dosage: CYCLE 6
     Route: 042
  6. DOXORUBICIN HCL [Suspect]
     Dosage: CYCLE 2
     Route: 042
  7. DOXORUBICIN HCL [Suspect]
     Dosage: CYCLE 9
     Route: 042
  8. PRIMPERAN TAB [Concomitant]
     Route: 048
  9. SEISHOKU [Concomitant]
     Route: 042
  10. DOXORUBICIN HCL [Suspect]
     Dosage: CYCLE 10
     Route: 042
  11. LENDORMIN [Concomitant]
     Indication: INSOMNIA
     Route: 048
  12. DOXORUBICIN HCL [Suspect]
     Dosage: CYCLE 3
     Route: 042
  13. SELBEX [Concomitant]
     Route: 048
  14. PURSENNID [Concomitant]
     Indication: CONSTIPATION
     Route: 048
  15. EMEND [Concomitant]
     Route: 048
  16. DOXORUBICIN HCL [Suspect]
     Dosage: CYCLE 5
     Route: 042
  17. MOHRUS TAPE [Concomitant]
     Indication: BACK PAIN
     Route: 062
  18. EMEND [Concomitant]
     Indication: PROPHYLAXIS
     Route: 048
  19. DOXORUBICIN HCL [Suspect]
     Dosage: CYCLE 1
     Route: 042
  20. DOXORUBICIN HCL [Suspect]
     Dosage: CYCLE 7
     Route: 042
  21. MAGMITT [Concomitant]
     Indication: CONSTIPATION
     Route: 048
  22. LOXONIN [Concomitant]
     Route: 048
  23. DECADRON [Concomitant]
     Indication: PROPHYLAXIS
     Route: 048

REACTIONS (1)
  - INTESTINAL OBSTRUCTION [None]
